FAERS Safety Report 12844685 (Version 2)
Quarter: 2016Q4

REPORT INFORMATION
  Report Type: Spontaneous
  Country: FR (occurrence: FR)
  Receive Date: 20161013
  Receipt Date: 20161111
  Transmission Date: 20170207
  Serious: Yes (Life-Threatening, Hospitalization, Other)
  Sender: FDA-Public Use
  Company Number: FR-PFIZER INC-2016476257

PATIENT
  Age: 79 Year
  Sex: Male

DRUGS (2)
  1. CEFEPIME HCL [Suspect]
     Active Substance: CEFEPIME HYDROCHLORIDE
     Indication: SEPSIS
     Dosage: UNK
  2. OFLOXACIN. [Suspect]
     Active Substance: OFLOXACIN
     Indication: SEPSIS
     Dosage: UNK

REACTIONS (5)
  - Abdominal compartment syndrome [Unknown]
  - Acute respiratory distress syndrome [Unknown]
  - Drug ineffective [Unknown]
  - Septic shock [Unknown]
  - Multiple organ dysfunction syndrome [Unknown]
